FAERS Safety Report 14352175 (Version 1)
Quarter: 2018Q1

REPORT INFORMATION
  Report Type: Spontaneous
  Country: US (occurrence: US)
  Receive Date: 20180103
  Receipt Date: 20180103
  Transmission Date: 20180509
  Serious: Yes (Hospitalization)
  Sender: FDA-Public Use
  Company Number: None

PATIENT
  Age: 61 Year
  Sex: Male
  Weight: 88.55 kg

DRUGS (2)
  1. BEVACIZUMAB (RHUMAB VEGF) [Suspect]
     Active Substance: BEVACIZUMAB
     Dates: end: 20150821
  2. ALIMTA [Suspect]
     Active Substance: PEMETREXED DISODIUM
     Dates: end: 20150821

REACTIONS (7)
  - Lactic acidosis [None]
  - Pyrexia [None]
  - Sinusitis [None]
  - Clostridium test positive [None]
  - Diarrhoea [None]
  - Sepsis [None]
  - Intentional product use issue [None]

NARRATIVE: CASE EVENT DATE: 20150912
